FAERS Safety Report 5781082-1 (Version None)
Quarter: 2008Q2

REPORT INFORMATION
  Report Type: 
  Country: None (occurrence: None)
  Receive Date: 20080620
  Receipt Date: 20080610
  Transmission Date: 20081010
  Serious: Yes (Hospitalization, Other)
  Sender: FDA-Public Use
  Company Number: US-PFIZER INC-2008049962

PATIENT
  Sex: Female
  Weight: 67.1 kg

DRUGS (7)
  1. LYRICA [Suspect]
     Indication: INTERVERTEBRAL DISC DEGENERATION
  2. NEURONTIN [Suspect]
     Indication: INTERVERTEBRAL DISC DEGENERATION
     Dates: start: 20070101, end: 20080501
  3. LASIX [Concomitant]
  4. PLAVIX [Concomitant]
  5. ASPIRIN [Concomitant]
  6. LOPRESSOR [Concomitant]
  7. ALBUTEROL SULFATE AUTOHALER [Concomitant]

REACTIONS (6)
  - CARDIAC OPERATION [None]
  - COORDINATION ABNORMAL [None]
  - DECREASED ACTIVITY [None]
  - DYSKINESIA [None]
  - INTENTIONAL DRUG MISUSE [None]
  - TREMOR [None]
